FAERS Safety Report 18131606 (Version 2)
Quarter: 2020Q3

REPORT INFORMATION
  Report Type: Report from Study
  Country: US (occurrence: US)
  Receive Date: 20200810
  Receipt Date: 20200819
  Transmission Date: 20201103
  Serious: Yes (Hospitalization)
  Sender: FDA-Public Use
  Company Number: US-ACTELION-A-US2018-174329

PATIENT
  Age: 73 Year
  Sex: Female
  Weight: 58.96 kg

DRUGS (7)
  1. PROAIR HFA [Concomitant]
     Active Substance: ALBUTEROL SULFATE
  2. OPSUMIT [Suspect]
     Active Substance: MACITENTAN
     Indication: PULMONARY ARTERIAL HYPERTENSION
     Dosage: 10 MG, QD
     Route: 048
     Dates: start: 20161212
  3. PROCTOZONE HC [Concomitant]
     Active Substance: HYDROCORTISONE
  4. ADEMPAS [Concomitant]
     Active Substance: RIOCIGUAT
  5. OPSUMIT [Suspect]
     Active Substance: MACITENTAN
     Dosage: 10 MG, QD
     Route: 048
     Dates: start: 20161212
  6. NEXIUM [Concomitant]
     Active Substance: ESOMEPRAZOLE MAGNESIUM
  7. ELIQUIS [Concomitant]
     Active Substance: APIXABAN

REACTIONS (14)
  - Urinary tract infection [Unknown]
  - Intentional dose omission [Unknown]
  - Diarrhoea [Not Recovered/Not Resolved]
  - Vomiting [Unknown]
  - Hypotension [Unknown]
  - Blood electrolytes decreased [Unknown]
  - Gastrointestinal disorder [Unknown]
  - Fall [Unknown]
  - Gastroenteritis [Unknown]
  - Nausea [Unknown]
  - Gastroenteritis viral [Recovering/Resolving]
  - Fluid retention [Not Recovered/Not Resolved]
  - Asthenia [Unknown]
  - Seasonal allergy [Unknown]

NARRATIVE: CASE EVENT DATE: 20180601
